FAERS Safety Report 6177941-0 (Version None)
Quarter: 2009Q2

REPORT INFORMATION
  Report Type: 
  Country: None (occurrence: None)
  Receive Date: 20090504
  Receipt Date: 20090428
  Transmission Date: 20091009
  Serious: Yes (Other)
  Sender: FDA-Public Use
  Company Number: US-MERCK-0904USA03504

PATIENT
  Age: 65 Year
  Sex: Female
  Weight: 79 kg

DRUGS (4)
  1. SINGULAIR [Suspect]
     Indication: ASTHMA
     Route: 048
     Dates: start: 20080401, end: 20080401
  2. SINGULAIR [Suspect]
     Route: 048
     Dates: start: 20071019
  3. SINGULAIR [Suspect]
     Indication: HYPERSENSITIVITY
     Route: 048
     Dates: start: 20080401, end: 20080401
  4. SINGULAIR [Suspect]
     Route: 048
     Dates: start: 20071019

REACTIONS (3)
  - DEPRESSION [None]
  - SUICIDAL IDEATION [None]
  - THROAT IRRITATION [None]
